FAERS Safety Report 4339660-2 (Version None)
Quarter: 2004Q1

REPORT INFORMATION
  Report Type: 
  Country: None (occurrence: None)
  Receive Date: 20040329
  Receipt Date: 20040106
  Transmission Date: 20041129
  Serious: No
  Sender: FDA-Public Use
  Company Number: 04P-163-0246330-00

PATIENT
  Age: 70 Year
  Sex: Female
  Weight: 90.7194 kg

DRUGS (7)
  1. HUMIRA [Suspect]
     Indication: RHEUMATOID ARTHRITIS
     Dosage: 40 MG, 1 IN 2 WK, SUBCUTANEOUS
     Route: 058
     Dates: start: 20031015
  2. HYDROXYCHLOROQUINE SULFATE [Concomitant]
  3. PREDNISONE [Concomitant]
  4. METOPROLOL [Concomitant]
  5. DYAZIDE [Concomitant]
  6. ALENDRONATE SODIUM [Concomitant]
  7. FUROSEMIDE [Concomitant]

REACTIONS (3)
  - FLUID RETENTION [None]
  - RASH [None]
  - RASH PRURITIC [None]
